FAERS Safety Report 20040580 (Version 1)
Quarter: 2021Q4

REPORT INFORMATION
  Report Type: Spontaneous
  Country: US (occurrence: None)
  Receive Date: 20211106
  Receipt Date: 20211106
  Transmission Date: 20220303
  Serious: No
  Sender: FDA-Public Use
  Company Number: None

PATIENT
  Age: 59 Year
  Sex: Male
  Weight: 86 kg

DRUGS (4)
  1. CARBOPLATIN [Suspect]
     Active Substance: CARBOPLATIN
     Dates: end: 20190724
  2. ETOPOSIDE [Suspect]
     Active Substance: ETOPOSIDE
     Dates: end: 20190724
  3. IFOSFAMIDE [Suspect]
     Active Substance: IFOSFAMIDE
     Dates: end: 20190526
  4. TAXOL [Suspect]
     Active Substance: PACLITAXEL
     Dates: end: 20190524

REACTIONS (3)
  - Pleural effusion [None]
  - Non-small cell lung cancer [None]
  - Metastases to lymph nodes [None]

NARRATIVE: CASE EVENT DATE: 20210930
